FAERS Safety Report 15974468 (Version 1)
Quarter: 2019Q1

REPORT INFORMATION
  Report Type: Spontaneous
  Country: TR (occurrence: TR)
  Receive Date: 20190218
  Receipt Date: 20190218
  Transmission Date: 20190418
  Serious: Yes (Other)
  Sender: FDA-Public Use
  Company Number: TR-ACCORD-107242

PATIENT
  Age: 38 Year
  Sex: Female

DRUGS (4)
  1. ALBENDAZOLE. [Interacting]
     Active Substance: ALBENDAZOLE
     Indication: RENAL ECHINOCOCCIASIS
  2. METHYLPREDNISOLONE. [Suspect]
     Active Substance: METHYLPREDNISOLONE
     Indication: IMMUNOSUPPRESSION
  3. MYCOPHENOLIC ACID. [Suspect]
     Active Substance: MYCOPHENOLIC ACID
     Indication: IMMUNOSUPPRESSION
  4. TACROLIMUS. [Suspect]
     Active Substance: TACROLIMUS
     Indication: IMMUNOSUPPRESSION
     Dosage: REDUCED TO 33% OF PRETREATMENT DOSE

REACTIONS (6)
  - Neutropenia [Recovered/Resolved]
  - Proteinuria [Recovered/Resolved]
  - Hepatotoxicity [Recovered/Resolved]
  - Echinococciasis [Recovered/Resolved]
  - Drug interaction [Unknown]
  - Drug level increased [Recovered/Resolved]
